FAERS Safety Report 24340987 (Version 2)
Quarter: 2025Q2

REPORT INFORMATION
  Report Type: Report from Study
  Country: CN (occurrence: CN)
  Receive Date: 20240919
  Receipt Date: 20250602
  Transmission Date: 20250717
  Serious: Yes (Hospitalization)
  Sender: EISAI
  Company Number: CN-Eisai-EC-2024-174187

PATIENT
  Age: 65 Year
  Sex: Male
  Weight: 57 kg

DRUGS (12)
  1. LENVATINIB [Suspect]
     Active Substance: LENVATINIB
     Indication: Hepatocellular carcinoma
     Dates: start: 20230927, end: 20240229
  2. VOLRUSTOMIG [Suspect]
     Active Substance: VOLRUSTOMIG
     Indication: Hepatocellular carcinoma
     Dates: start: 20231017, end: 20231017
  3. 2-DIPHENYLMETHOXYETHYLETHYL [Concomitant]
     Indication: Adverse event
     Dates: start: 20231128
  4. ACTIFED COMPOUND [Concomitant]
     Dates: start: 20231128, end: 20240415
  5. PC PHOSPHATIDYLCHOLINE [Concomitant]
     Indication: Prophylaxis
     Dates: start: 20231117, end: 20240415
  6. CALCIUM CARBONATE\CHOLECALCIFEROL [Concomitant]
     Active Substance: CALCIUM CARBONATE\CHOLECALCIFEROL
     Indication: Adverse event
     Dates: start: 20231111
  7. ACT PREGABALIN [Concomitant]
     Dates: start: 20231109
  8. BI TOFACITINIB [Concomitant]
     Indication: Adverse event
     Dates: start: 20231102
  9. LEVOTHYROXINE SODIUM [Concomitant]
     Active Substance: LEVOTHYROXINE SODIUM
     Dates: start: 20231101
  10. AG TENOFOVIR [Concomitant]
     Dates: start: 20230924
  11. ENTECAVIR [Concomitant]
     Active Substance: ENTECAVIR
     Indication: Hepatitis B
     Dates: start: 20230924
  12. TENOFOVIR ALAFENOL FUMARATE [Concomitant]
     Indication: Hepatitis B

REACTIONS (2)
  - Immune-mediated neuropathy [Recovering/Resolving]
  - Enteritis [Recovered/Resolved]

NARRATIVE: CASE EVENT DATE: 20231025
